FAERS Safety Report 16932834 (Version 1)
Quarter: 2019Q4

REPORT INFORMATION
  Report Type: Spontaneous
  Country: US (occurrence: US)
  Receive Date: 20191018
  Receipt Date: 20191018
  Transmission Date: 20200122
  Serious: No
  Sender: FDA-Public Use
  Company Number: NVSC2019US004044

PATIENT
  Age: 33 Year
  Sex: Female

DRUGS (1)
  1. LEUPROLIDE ACETATE. [Suspect]
     Active Substance: LEUPROLIDE ACETATE
     Indication: LUTEINISING UNRUPTURED FOLLICLE SYNDROME
     Dosage: 1 MG, Q12H
     Route: 065

REACTIONS (1)
  - Treatment failure [Unknown]
